FAERS Safety Report 24119235 (Version 1)
Quarter: 2024Q3

REPORT INFORMATION
  Report Type: Spontaneous
  Country: ES (occurrence: None)
  Receive Date: 20240722
  Receipt Date: 20240722
  Transmission Date: 20241017
  Serious: Yes (Life-Threatening)
  Sender: ASTRAZENECA
  Company Number: 2024A162823

PATIENT
  Age: 63 Year
  Sex: Male

DRUGS (4)
  1. XIGDUO XR [Suspect]
     Active Substance: DAPAGLIFLOZIN PROPANEDIOL\METFORMIN HYDROCHLORIDE
     Indication: Diabetes mellitus
     Dosage: 5 MG/850 MG , 1.0 COMP, 56 TABLETS
     Route: 048
     Dates: start: 20240514
  2. OMEPRAZOLE [Concomitant]
     Active Substance: OMEPRAZOLE
     Indication: Product used for unknown indication
     Dosage: 20.0 MG A-DECE, 56 CAPSULES
     Route: 048
     Dates: start: 20080917
  3. ASPIRIN [Concomitant]
     Active Substance: ASPIRIN
     Indication: Product used for unknown indication
     Dosage: 100.0 MG DE, 30 TABLETS
     Route: 048
     Dates: start: 20080917
  4. PARACETAMOL CINFA [Concomitant]
     Indication: Product used for unknown indication
     Dosage: 1.0 G A-DE, 40 TABLETS
     Route: 048
     Dates: start: 20130125

REACTIONS (1)
  - Hepatocellular injury [Recovering/Resolving]

NARRATIVE: CASE EVENT DATE: 20240514
